FAERS Safety Report 6614613-X (Version None)
Quarter: 2010Q1

REPORT INFORMATION
  Report Type: 
  Country: None (occurrence: None)
  Receive Date: 20100226
  Receipt Date: 20100218
  Transmission Date: 20100710
  Serious: Yes (Other)
  Sender: FDA-Public Use
  Company Number: TPA2010A00766

PATIENT
  Age: 57 Year
  Sex: Female
  Weight: 55.7924 kg

DRUGS (2)
  1. ACTOS [Suspect]
     Indication: DRUG USE FOR UNKNOWN INDICATION
     Dosage: 15 MG, 1 IN 1 D, PER ORAL
     Route: 048
     Dates: start: 20040101
  2. ACTOS [Suspect]
     Indication: TYPE 2 DIABETES MELLITUS
     Dosage: 15 MG, 1 IN 1 D, PER ORAL
     Route: 048
     Dates: start: 20040101

REACTIONS (6)
  - FLUID RETENTION [None]
  - MACULAR HOLE [None]
  - OSTEOPENIA [None]
  - VITAMIN D DECREASED [None]
  - VITREOUS DETACHMENT [None]
  - WEIGHT INCREASED [None]
